FAERS Safety Report 10501036 (Version 3)
Quarter: 2015Q1

REPORT INFORMATION
  Report Type: Report from Study
  Country: US (occurrence: US)
  Receive Date: 20141007
  Receipt Date: 20150320
  Transmission Date: 20150720
  Serious: Yes (Hospitalization)
  Sender: FDA-Public Use
  Company Number: US-TARO-2014TAR00426

PATIENT
  Age: 82 Year
  Sex: Male

DRUGS (9)
  1. IMIQUIMOD CREAM 5% [Suspect]
     Active Substance: IMIQUIMOD
     Indication: ACTINIC KERATOSIS
     Dosage: 1 DOSAGE UNITS, 2X/WEEK
     Route: 061
     Dates: start: 20140411, end: 20140729
  2. VERAPAMIL [Concomitant]
     Active Substance: VERAPAMIL HYDROCHLORIDE
     Dosage: 180 MG, 1X/DAY
     Route: 048
     Dates: start: 2012
  3. TAMSULOSIN [Concomitant]
     Active Substance: TAMSULOSIN
     Dosage: 0.4 MG, 1X/DAY
     Route: 048
     Dates: start: 2012
  4. NORCO [Concomitant]
     Active Substance: ACETAMINOPHEN\HYDROCODONE BITARTRATE
     Dosage: UNK, AS NEEDED
  5. ASCORBATE CALCIUM [Concomitant]
     Dosage: 1 TABLETS, 1X/DAY
     Route: 048
  6. DESOXIMETASONE CREAM 0.05% [Concomitant]
     Dosage: UNK, 2X/DAY
     Route: 061
     Dates: start: 2013
  7. METFORMIN [Concomitant]
     Active Substance: METFORMIN HYDROCHLORIDE
     Dosage: 500 MG, 2X/DAY
     Route: 048
     Dates: start: 2001
  8. ASPIRIN. [Concomitant]
     Active Substance: ASPIRIN
     Dosage: 81 MG, 1X/DAY
     Route: 048
     Dates: start: 2001
  9. HYDROCHLOROTHIAZIDE AND LISINOPRIL [Concomitant]
     Active Substance: HYDROCHLOROTHIAZIDE\LISINOPRIL
     Dosage: UNK, 1X/DAY
     Route: 048
     Dates: start: 2012

REACTIONS (1)
  - Infection [Unknown]

NARRATIVE: CASE EVENT DATE: 20140813
